FAERS Safety Report 11076788 (Version 2)
Quarter: 2015Q2

REPORT INFORMATION
  Report Type: Spontaneous
  Country: EG (occurrence: EG)
  Receive Date: 20150429
  Receipt Date: 20150507
  Transmission Date: 20150821
  Serious: Yes (Other)
  Sender: FDA-Public Use
  Company Number: EG-NOVOPROD-446916

PATIENT
  Sex: Male
  Weight: 3.3 kg

DRUGS (6)
  1. IRON [Concomitant]
     Active Substance: IRON
     Dosage: 4 AMPOULES ON 500 CM SALINE, TAKEN 2 TIMES ONLY
     Route: 064
  2. CALCIUM [Concomitant]
     Active Substance: CALCIUM
     Dosage: SINGLE, START DATE AT 3RD TRIMESTER
     Route: 064
     Dates: end: 20141225
  3. ACTRAPID [Suspect]
     Active Substance: INSULIN HUMAN
     Indication: GESTATIONAL DIABETES
     Dosage: 35 IU, QD (10 IU MORNING , 15 IU LUNCH , 10 IU NIGHT)
     Route: 064
     Dates: start: 20140405, end: 20141225
  4. IRON [Concomitant]
     Active Substance: IRON
     Dosage: SINGLE, MOTHER STARTED AT 3RD TIMESTER
     Route: 064
     Dates: end: 20141225
  5. FOLIC ACID. [Concomitant]
     Active Substance: FOLIC ACID
     Dosage: TID, STARTED AT THE FIRST TRIMESTER AND STOPPED AFTER THE FIRST TRIMESTER
     Route: 064
  6. INSULATARD NPH HUMAN [Suspect]
     Active Substance: INSULIN HUMAN
     Indication: GESTATIONAL DIABETES
     Dosage: 50 IU, QD (20 IU MORNING AND 30 IU NIGHT)
     Route: 064
     Dates: start: 20140405, end: 20141225

REACTIONS (2)
  - Foetal exposure during pregnancy [Recovered/Resolved]
  - Neonatal respiratory distress syndrome [Recovered/Resolved]

NARRATIVE: CASE EVENT DATE: 20140405
